FAERS Safety Report 6063279-9 (Version None)
Quarter: 2009Q1

REPORT INFORMATION
  Report Type: 
  Country: None (occurrence: None)
  Receive Date: 20090203
  Receipt Date: 20080201
  Transmission Date: 20090719
  Serious: Yes (Other)
  Sender: FDA-Public Use
  Company Number: US-BAXTER-2009BH001572

PATIENT
  Age: 61 Year
  Sex: Female

DRUGS (14)
  1. GAMMAGARD LIQUID [Suspect]
     Indication: IMMUNODEFICIENCY COMMON VARIABLE
     Route: 042
  2. IVEEGAM [Suspect]
     Indication: IMMUNODEFICIENCY COMMON VARIABLE
     Route: 042
  3. CARIMUNE NF [Suspect]
     Indication: IMMUNODEFICIENCY COMMON VARIABLE
     Route: 042
  4. FLEBOGAMMA [Suspect]
     Indication: IMMUNODEFICIENCY COMMON VARIABLE
     Route: 042
  5. GAMIMUNE N [Suspect]
     Indication: IMMUNODEFICIENCY COMMON VARIABLE
     Route: 042
  6. GAMMAR-P I.V. [Suspect]
     Indication: IMMUNODEFICIENCY COMMON VARIABLE
     Route: 042
  7. GAMUNEX [Suspect]
     Indication: IMMUNODEFICIENCY COMMON VARIABLE
     Route: 042
  8. OCTAGAM [Suspect]
     Indication: IMMUNODEFICIENCY COMMON VARIABLE
     Route: 042
  9. PANGLOBULIN [Suspect]
     Indication: IMMUNODEFICIENCY COMMON VARIABLE
     Route: 042
  10. SANDOGLOBULIN [Suspect]
     Indication: IMMUNODEFICIENCY COMMON VARIABLE
     Route: 042
  11. ACETAMINOPHEN [Concomitant]
     Indication: PREMEDICATION
  12. DIPHENHYDRAMINE HCL [Concomitant]
     Indication: PREMEDICATION
  13. ZANTAC [Concomitant]
     Indication: PREMEDICATION
  14. SOLU-CORTEF [Concomitant]
     Indication: PREMEDICATION

REACTIONS (3)
  - ANAPHYLACTOID REACTION [None]
  - CHEST DISCOMFORT [None]
  - DRUG INTOLERANCE [None]
